FAERS Safety Report 5458067-8 (Version None)
Quarter: 2007Q3

REPORT INFORMATION
  Report Type: 
  Country: None (occurrence: None)
  Receive Date: 20070917
  Receipt Date: 20070906
  Transmission Date: 20080115
  Serious: Yes (Hospitalization)
  Sender: FDA-Public Use
  Company Number: 2007-02593

PATIENT
  Age: 45 Year
  Sex: Male
  Weight: 77 kg

DRUGS (3)
  1. VELCADE [Suspect]
     Indication: MULTIPLE MYELOMA
     Dosage: 1.30 MG/M2, INTRAVENOUS
     Route: 042
     Dates: start: 20070719, end: 20070726
  2. CYCLOPHOSPHAMIDE [Suspect]
     Indication: MULTIPLE MYELOMA
     Dosage: 900.00 MG/M2, INTRAVENOUS
     Route: 042
     Dates: start: 20070719
  3. DEXAMETHASONE [Suspect]
     Indication: MULTIPLE MYELOMA

REACTIONS (12)
  - ANAEMIA [None]
  - ANXIETY [None]
  - BLOOD PRODUCT TRANSFUSION DEPENDENT [None]
  - CHEST PAIN [None]
  - DYSPNOEA [None]
  - GRANULOCYTE COUNT DECREASED [None]
  - PARAPROTEINAEMIA [None]
  - PNEUMONIA [None]
  - PULMONARY EMBOLISM [None]
  - PYREXIA [None]
  - THROMBOPHLEBITIS [None]
  - WHITE BLOOD CELL COUNT DECREASED [None]
